FAERS Safety Report 7485231-9 (Version None)
Quarter: 2011Q2

REPORT INFORMATION
  Report Type: 
  Country: None (occurrence: None)
  Receive Date: 20110517
  Receipt Date: 20110511
  Transmission Date: 20111010
  Serious: Yes (Other)
  Sender: FDA-Public Use
  Company Number: IT-ABBOTT-10P-083-0683345-00

PATIENT
  Age: 3 Year
  Sex: Female

DRUGS (5)
  1. VALPROATE SODIUM [Interacting]
  2. TRIHEXYPHENIDYL [Interacting]
  3. TRIHEXYPHENIDYL [Interacting]
     Indication: DYSTONIA
  4. VALPROATE SODIUM [Suspect]
     Indication: EPILEPSY
  5. LEVETIRACETAM [Concomitant]
     Indication: EPILEPSY

REACTIONS (2)
  - DRUG LEVEL DECREASED [None]
  - DRUG INTERACTION [None]
